FAERS Safety Report 14600438 (Version 1)
Quarter: 2018Q1

REPORT INFORMATION
  Report Type: Spontaneous
  Country: GB (occurrence: GB)
  Receive Date: 20180305
  Receipt Date: 20180305
  Transmission Date: 20180509
  Serious: Yes (Other)
  Sender: FDA-Public Use
  Company Number: GB-GLAXOSMITHKLINE-GB2018032212

PATIENT
  Age: 91 Year
  Sex: Male
  Weight: 84 kg

DRUGS (18)
  1. OMEPRAZOLE. [Concomitant]
     Active Substance: OMEPRAZOLE
     Dosage: 1 DF, QD
     Route: 065
     Dates: start: 20170628
  2. LAXIDO [Concomitant]
     Active Substance: POLYETHYLENE GLYCOL 3350\POTASSIUM CHLORIDE\SODIUM BICARBONATE\SODIUM CHLORIDE
     Dosage: NIGHT
     Route: 065
     Dates: start: 20170628
  3. RELVAR ELLIPTA [Suspect]
     Active Substance: FLUTICASONE FUROATE\VILANTEROL TRIFENATATE
     Indication: PRODUCT USED FOR UNKNOWN INDICATION
     Dosage: 92 ?G, QD
     Route: 055
     Dates: start: 20170905, end: 20171221
  4. VENTOLIN [Concomitant]
     Active Substance: ALBUTEROL SULFATE
     Dosage: AS NECESSARY
     Route: 055
     Dates: start: 20170628
  5. FUROSEMIDE. [Concomitant]
     Active Substance: FUROSEMIDE
     Dosage: MORNING
     Route: 065
     Dates: start: 20170628
  6. NASEPTIN [Concomitant]
     Active Substance: CHLORHEXIDINE HYDROCHLORIDE\NEOMYCIN SULFATE
     Dosage: APPLY TO THE NOSTRILS
     Route: 045
     Dates: start: 20171130, end: 20171207
  7. CALCICHEW D3 [Concomitant]
     Active Substance: CALCIUM\CHOLECALCIFEROL
     Dosage: 2 DF, QD
     Route: 065
     Dates: start: 20170628
  8. FENBID [Concomitant]
     Active Substance: IBUPROFEN
     Dosage: APPLY
     Route: 065
     Dates: start: 20171030, end: 20171109
  9. NYSTATIN. [Concomitant]
     Active Substance: NYSTATIN
     Dosage: RINSED AROUND THE MOUTH AND THEN SWALLOW
     Route: 048
     Dates: start: 20171214, end: 20171221
  10. RAMIPRIL. [Concomitant]
     Active Substance: RAMIPRIL
     Dosage: 1 DF, QD
     Route: 065
     Dates: start: 20171030, end: 20171127
  11. GLYCERYL TRINITRATE [Concomitant]
     Active Substance: NITROGLYCERIN
     Dosage: AS NECESSARY
     Route: 055
     Dates: start: 20170628
  12. AMOXICILLIN. [Concomitant]
     Active Substance: AMOXICILLIN
     Dosage: 3 DF, QD
     Route: 065
     Dates: start: 20171214, end: 20171221
  13. PARACETAMOL [Concomitant]
     Active Substance: ACETAMINOPHEN
     Dosage: 8 DF, QD
     Route: 065
     Dates: start: 20170628
  14. DIGOXIN. [Concomitant]
     Active Substance: DIGOXIN
     Dosage: 1 DF, QD
     Route: 065
     Dates: start: 20170628
  15. ISOSORBIDE MONONITRATE. [Concomitant]
     Active Substance: ISOSORBIDE MONONITRATE
     Dosage: MORNING
     Route: 065
     Dates: start: 20170628
  16. ACETYLSALICYLIC ACID [Concomitant]
     Active Substance: ASPIRIN
     Dosage: 1 DF, QD
     Route: 065
     Dates: start: 20170628
  17. FUSIDIC ACID [Concomitant]
     Active Substance: FUSIDIC ACID
     Dosage: APPLY TO AFFECTED AREA
     Route: 065
     Dates: start: 20171030, end: 20171106
  18. BECLOMETASONE [Concomitant]
     Active Substance: BECLOMETHASONE DIPROPIONATE
     Dosage: 4 DF, QD
     Route: 055
     Dates: start: 20170628

REACTIONS (4)
  - Palatal disorder [Unknown]
  - Wrong technique in product usage process [Unknown]
  - Oral pain [Unknown]
  - Oral candidiasis [Recovering/Resolving]

NARRATIVE: CASE EVENT DATE: 20171221
